FAERS Safety Report 6842306-2 (Version None)
Quarter: 2010Q3

REPORT INFORMATION
  Report Type: 
  Country: None (occurrence: None)
  Receive Date: 20100714
  Receipt Date: 20070724
  Transmission Date: 20110219
  Serious: No
  Sender: FDA-Public Use
  Company Number: US-PFIZER INC-2007062595

PATIENT
  Sex: Female
  Weight: 42.6 kg

DRUGS (7)
  1. CHANTIX [Suspect]
     Indication: SMOKING CESSATION THERAPY
     Dates: start: 20070101
  2. ADVAIR DISKUS 100/50 [Concomitant]
     Indication: ASTHMA
  3. DUONEB [Concomitant]
     Indication: ASTHMA
  4. PREDNISONE TAB [Concomitant]
  5. SYNTHROID [Concomitant]
  6. SPIRIVA [Concomitant]
  7. ANASTROZOLE [Concomitant]

REACTIONS (2)
  - DYSGEUSIA [None]
  - RETCHING [None]
